FAERS Safety Report 16728403 (Version 1)
Quarter: 2019Q3

REPORT INFORMATION
  Report Type: Spontaneous
  Country: US (occurrence: US)
  Receive Date: 20190704
  Receipt Date: 20190704
  Transmission Date: 20191005
  Serious: No
  Sender: FDA-Public Use
  Company Number: None

PATIENT
  Age: 76 Year
  Sex: Male
  Weight: 90 kg

DRUGS (1)
  1. IODIXANOL. [Suspect]
     Active Substance: IODIXANOL
     Indication: ANGIOGRAM
     Dates: start: 20190430, end: 20190430

REACTIONS (1)
  - Acute kidney injury [None]

NARRATIVE: CASE EVENT DATE: 20190430
